FAERS Safety Report 6922788-8 (Version None)
Quarter: 2010Q3

REPORT INFORMATION
  Report Type: 
  Country: None (occurrence: None)
  Receive Date: 20100813
  Receipt Date: 20100713
  Transmission Date: 20110219
  Serious: No
  Sender: FDA-Public Use
  Company Number: US-BAYER-201018313BCC

PATIENT
  Age: 64 Year
  Sex: Male
  Weight: 173 kg

DRUGS (14)
  1. ALEVE (CAPLET) [Suspect]
     Indication: PAIN
     Dosage: TOTAL DAILY DOSE: 1760 MG  UNIT DOSE: 220 MG
     Route: 048
     Dates: start: 20100701, end: 20100701
  2. HUMALOG [Concomitant]
     Route: 065
  3. LANTUS [Concomitant]
     Route: 065
  4. SPIRONOLACTONE [Concomitant]
     Route: 065
  5. SYNTHROID [Concomitant]
     Route: 065
  6. FOSINOPRIL SODIUM [Concomitant]
     Route: 065
  7. GLIMEPIRIDE [Concomitant]
     Route: 065
  8. LIPITOR [Concomitant]
     Route: 065
  9. CLARITIN-D [Concomitant]
     Route: 065
  10. ANDRODERM [Concomitant]
     Route: 065
  11. OSTEO BIFLEX [Concomitant]
     Route: 065
  12. PANTOPRAZOLE [Concomitant]
     Route: 065
  13. CILIAS [Concomitant]
     Route: 065
  14. NASONEX [Concomitant]
     Route: 065

REACTIONS (2)
  - FLUID RETENTION [None]
  - OEDEMA PERIPHERAL [None]
